FAERS Safety Report 23522399 (Version 1)
Quarter: 2024Q1

REPORT INFORMATION
  Report Type: Spontaneous
  Country: GR (occurrence: GR)
  Receive Date: 20240214
  Receipt Date: 20240214
  Transmission Date: 20240410
  Serious: Yes (Hospitalization)
  Sender: FDA-Public Use
  Company Number: GR-SERVIER-S24001244

PATIENT

DRUGS (1)
  1. IVOSIDENIB [Suspect]
     Active Substance: IVOSIDENIB
     Indication: Acute myeloid leukaemia
     Dosage: 500 MG, QD (TAKEN AS 2X 250 MG TABLETS)
     Route: 048
     Dates: start: 20231226, end: 20240121

REACTIONS (5)
  - Differentiation syndrome [Recovering/Resolving]
  - Weight increased [Recovering/Resolving]
  - Oedema peripheral [Recovering/Resolving]
  - Blood creatinine increased [Recovering/Resolving]
  - Fungaemia [Recovering/Resolving]

NARRATIVE: CASE EVENT DATE: 20240119
